FAERS Safety Report 15080652 (Version 1)
Quarter: 2018Q2

REPORT INFORMATION
  Report Type: Other
  Country: DE (occurrence: DE)
  Receive Date: 20180628
  Receipt Date: 20180628
  Transmission Date: 20180711
  Serious: No
  Sender: FDA-Public Use
  Company Number: DE-LUPIN PHARMACEUTICALS INC.-2017-06093

PATIENT

DRUGS (2)
  1. SIMVASTATIN. [Suspect]
     Active Substance: SIMVASTATIN
     Indication: LOW DENSITY LIPOPROTEIN INCREASED
     Dosage: 40 MG, QD
     Route: 048
     Dates: start: 201311, end: 201312
  2. ATORVASTATIN [Suspect]
     Active Substance: ATORVASTATIN
     Indication: LOW DENSITY LIPOPROTEIN INCREASED
     Dosage: 40 MG, QD
     Route: 048
     Dates: start: 201312, end: 201410

REACTIONS (1)
  - Myalgia [Recovered/Resolved]

NARRATIVE: CASE EVENT DATE: 201312
